FAERS Safety Report 4602502-1 (Version None)
Quarter: 2005Q1

REPORT INFORMATION
  Report Type: 
  Country: None (occurrence: None)
  Receive Date: 20050307
  Receipt Date: 20050222
  Transmission Date: 20050727
  Serious: Yes (Hospitalization, Other)
  Sender: FDA-Public Use
  Company Number: 2005007724

PATIENT
  Age: 67 Year
  Sex: Male
  Weight: 90.7194 kg

DRUGS (10)
  1. BEXTRA [Suspect]
     Indication: ARTHRITIS
     Dosage: 10 MG, ORAL
     Route: 048
  2. WARFARIN SODIUM [Concomitant]
  3. ATORVASTATIN CALCIUM [Concomitant]
  4. LOTREL [Concomitant]
  5. VALSARTAN (VALSARTAN) [Concomitant]
  6. METFORMIN HCL [Concomitant]
  7. CARVEDILOL [Concomitant]
  8. LANSOPRAZOLE [Concomitant]
  9. HYDROCHLOROTHIAZIDE [Concomitant]
  10. MESALAMINE [Concomitant]

REACTIONS (3)
  - ATRIAL FIBRILLATION [None]
  - BLOOD PRESSURE INADEQUATELY CONTROLLED [None]
  - PAIN [None]
